FAERS Safety Report 11363743 (Version 1)
Quarter: 2015Q3

REPORT INFORMATION
  Report Type: Spontaneous
  Country: CA (occurrence: CA)
  Receive Date: 20150811
  Receipt Date: 20150811
  Transmission Date: 20151125
  Serious: Yes (Disabling)
  Sender: FDA-Public Use
  Company Number: CA-TEVA-585136ACC

PATIENT
  Sex: Male

DRUGS (1)
  1. TAMSULOSIN CR [Suspect]
     Active Substance: TAMSULOSIN
     Indication: POLLAKIURIA
     Dosage: .4 MILLIGRAM DAILY;
     Route: 065

REACTIONS (2)
  - Pollakiuria [Unknown]
  - Product substitution issue [Unknown]
